FAERS Safety Report 15801654 (Version 2)
Quarter: 2019Q1

REPORT INFORMATION
  Report Type: Spontaneous
  Country: US (occurrence: US)
  Receive Date: 20190109
  Receipt Date: 20190218
  Transmission Date: 20190417
  Serious: No
  Sender: FDA-Public Use
  Company Number: US-PFIZER INC-2019011020

PATIENT
  Age: 64 Year
  Sex: Female

DRUGS (2)
  1. EUCRISA [Suspect]
     Active Substance: CRISABOROLE
     Indication: ECZEMA EYELIDS
     Dosage: UNK, 2X/DAY
     Route: 061
  2. CLODERM [CLOBETASOL PROPIONATE] [Concomitant]
     Indication: DERMATITIS
     Dosage: UNK UNK, DAILY
     Dates: start: 201003

REACTIONS (2)
  - Application site burn [Unknown]
  - Muscle twitching [Unknown]
